FAERS Safety Report 7387177-3 (Version None)
Quarter: 2011Q1

REPORT INFORMATION
  Report Type: 
  Country: None (occurrence: None)
  Receive Date: 20110331
  Receipt Date: 20110321
  Transmission Date: 20110831
  Serious: Yes (Hospitalization, Other)
  Sender: FDA-Public Use
  Company Number: B0707081A

PATIENT
  Sex: Female

DRUGS (7)
  1. FLIXOTIDE [Suspect]
     Indication: ASTHMA
     Dosage: 1PUFF TWICE PER DAY
     Route: 055
     Dates: end: 20101214
  2. MEMANTINE [Concomitant]
     Dosage: 20MG PER DAY
     Route: 048
  3. DILTIAZEM [Concomitant]
     Dosage: 200MG PER DAY
     Route: 048
  4. SINGULAIR [Concomitant]
     Indication: ASTHMA
     Route: 048
  5. FORADIL [Concomitant]
     Indication: ASTHMA
     Route: 055
  6. VENTOLIN [Concomitant]
     Indication: ASTHMA
     Route: 055
  7. LASIX [Concomitant]
     Dosage: 20MG PER DAY
     Route: 048

REACTIONS (11)
  - BRONCHOPULMONARY ASPERGILLOSIS [None]
  - CHEST PAIN [None]
  - HYPOXIA [None]
  - ASTHMA [None]
  - SPUTUM PURULENT [None]
  - DEEP VEIN THROMBOSIS [None]
  - DYSPNOEA [None]
  - PULMONARY EMBOLISM [None]
  - RESPIRATORY FAILURE [None]
  - PYREXIA [None]
  - PAIN IN EXTREMITY [None]
